FAERS Safety Report 4292604-4 (Version None)
Quarter: 2004Q1

REPORT INFORMATION
  Report Type: 
  Country: None (occurrence: None)
  Receive Date: 20040126
  Receipt Date: 20031016
  Transmission Date: 20041129
  Serious: No
  Sender: FDA-Public Use
  Company Number: USA031050140

PATIENT
  Age: 92 Year
  Sex: Female

DRUGS (9)
  1. FORTEO [Suspect]
     Indication: OSTEOPOROSIS
     Dates: start: 20030811
  2. FOLIC ACID [Concomitant]
  3. PRAVACHOL (CERIVASTATIN SODIUM) [Concomitant]
  4. ASPIRIN [Concomitant]
  5. MULTIVITAMINS NOS (MUILTIVITAMINS NOS) [Concomitant]
  6. VITAMIN C [Concomitant]
  7. CELEXA (CITALOPRMA HYDROBROMIDE) [Concomitant]
  8. TYLENOL [Concomitant]
  9. AMBIEN [Concomitant]

REACTIONS (4)
  - ASTHENIA [None]
  - COMPULSIONS [None]
  - DIZZINESS [None]
  - FATIGUE [None]
